FAERS Safety Report 11949866 (Version 1)
Quarter: 2016Q1

REPORT INFORMATION
  Report Type: Spontaneous
  Country: US (occurrence: None)
  Receive Date: 20160122
  Receipt Date: 20160122
  Transmission Date: 20160526
  Serious: Yes (Other)
  Sender: FDA-Public Use
  Company Number: None

PATIENT
  Age: 49 Year
  Sex: Female
  Weight: 72.8 kg

DRUGS (2)
  1. LEVOTHYROXINE 100 MCG SANDOZ [Suspect]
     Active Substance: LEVOTHYROXINE
     Indication: HYPERTHYROIDISM
     Route: 048
     Dates: start: 201305, end: 201306
  2. LEVOTHYROINE 50 MCG SANDOZ [Suspect]
     Active Substance: LEVOTHYROXINE
     Indication: HYPERTHYROIDISM
     Dates: start: 201307, end: 201308

REACTIONS (2)
  - Pruritus generalised [None]
  - Rash [None]

NARRATIVE: CASE EVENT DATE: 20130808
